FAERS Safety Report 9331989 (Version 1)
Quarter: 2013Q2

REPORT INFORMATION
  Report Type: Spontaneous
  Country: JP (occurrence: None)
  Receive Date: 20130603
  Receipt Date: 20130603
  Transmission Date: 20140414
  Serious: Yes (Hospitalization)
  Sender: FDA-Public Use
  Company Number: SYM-2013-04424

PATIENT
  Age: 72 Year
  Sex: Male

DRUGS (10)
  1. FLUOROURACIL [Suspect]
     Indication: RECTAL CANCER
     Dosage: INTRAVENOUS (NOT OTHERWISE SPECIFIED)
     Route: 042
     Dates: start: 20070320, end: 20070321
  2. OXALIPLATIN [Suspect]
     Indication: RECTAL CANCER
     Dosage: EVERY CYCLE, INTRAVENOUS DRIP
     Route: 041
     Dates: start: 20070320, end: 20070320
  3. CALCIUM LEVOFOLINATE [Suspect]
     Indication: RECTAL CANCER
     Dates: start: 20070320, end: 20070320
  4. KYTIL (GRANISETRON HYDROCHLORIDE) (GRANISETRON HYDROCHLORIDE) [Concomitant]
  5. DECADRON (DEXAMETHASONE) (DEXAMETHASONE) [Concomitant]
  6. BASEN (VOGLIBOSE) (VOGLIBOSE) [Concomitant]
  7. EUGLUCON (GLIBENCLAMIDE) (GLIBENCLAMIIDE) [Concomitant]
  8. PREDONINE (PREDNISOLONE) (PREDNISOLONE) [Concomitant]
  9. METHYLPREDNISOLONE SODIUM SUCCINATE (METHYLPREDNISONE SODIUM SUCCINATE) (METHYLPREDNISOLONE SODIUM SUCCINATE) [Concomitant]
  10. DAONIL (GLIBENCLAMIDE) (GLIBENCLAMIDE) [Concomitant]

REACTIONS (4)
  - Interstitial lung disease [None]
  - Neuropathy peripheral [None]
  - Activities of daily living impaired [None]
  - Pneumonitis [None]
